FAERS Safety Report 13078289 (Version 1)
Quarter: 2017Q1

REPORT INFORMATION
  Report Type: Spontaneous
  Country: US (occurrence: US)
  Receive Date: 20170102
  Receipt Date: 20170102
  Transmission Date: 20170428
  Serious: No
  Sender: FDA-Public Use
  Company Number: US-B.I. PHARMACEUTICALS,INC./RIDGEFIELD-2016-BI-087168

PATIENT
  Sex: Female

DRUGS (15)
  1. LOVASTATIN. [Concomitant]
     Active Substance: LOVASTATIN
     Indication: BLOOD CHOLESTEROL
     Dosage: 1 TABLET DAILY WITH EVENING MEAL
     Route: 048
     Dates: start: 20151229
  2. TRIAMCLNOLONE ACETONIDE [Concomitant]
     Indication: PRODUCT USED FOR UNKNOWN INDICATION
     Dosage: APPLY THIN LAYER TO AFFECTED AREAS FOR 10 DAYS.
     Dates: start: 20160224
  3. CLONIDINE. [Suspect]
     Active Substance: CLONIDINE
     Indication: PRODUCT USED FOR UNKNOWN INDICATION
     Route: 065
  4. DIPHEN [Concomitant]
     Indication: SLEEP DISORDER
     Dosage: IN THE EVENING
     Route: 048
  5. PROAIR HFA [Concomitant]
     Active Substance: ALBUTEROL SULFATE
     Indication: WHEEZING
  6. SPIRONOLACTONE. [Concomitant]
     Active Substance: SPIRONOLACTONE
     Indication: HYPERTENSION
     Dosage: 1/2 QAM (EVERY MORNING)
     Route: 048
     Dates: start: 20151229
  7. BIOTIN [Concomitant]
     Active Substance: BIOTIN
     Indication: PRODUCT USED FOR UNKNOWN INDICATION
     Route: 048
  8. VITAMIN D3 [Concomitant]
     Active Substance: CHOLECALCIFEROL
     Indication: PRODUCT USED FOR UNKNOWN INDICATION
     Route: 048
     Dates: end: 20140701
  9. PROAIR HFA [Concomitant]
     Active Substance: ALBUTEROL SULFATE
     Indication: COUGH
     Dosage: 1-2 PUFFS EVERY 4-6 HOURS
     Route: 055
     Dates: start: 20140909
  10. GABAPENTIN. [Concomitant]
     Active Substance: GABAPENTIN
     Indication: PRODUCT USED FOR UNKNOWN INDICATION
     Dosage: 1 TABLET BY ORAL ROUTE AM AND PM AND 1.5 TABLET ORAL QHS
     Route: 048
     Dates: start: 20151229
  11. OMEPRAZOLE. [Concomitant]
     Active Substance: OMEPRAZOLE
     Indication: PRODUCT USED FOR UNKNOWN INDICATION
     Route: 048
     Dates: start: 20151229
  12. DETROL LA [Concomitant]
     Active Substance: TOLTERODINE TARTRATE
     Indication: URINARY INCONTINENCE
     Route: 048
     Dates: start: 20161108
  13. AMLODIPINE [Concomitant]
     Active Substance: AMLODIPINE BESYLATE
     Indication: PRODUCT USED FOR UNKNOWN INDICATION
     Dosage: 1/2 TABLET
     Route: 048
     Dates: start: 20151229
  14. ASPIRIN. [Concomitant]
     Active Substance: ASPIRIN
     Indication: PRODUCT USED FOR UNKNOWN INDICATION
     Route: 048
     Dates: start: 20151229
  15. ATENOLOL. [Concomitant]
     Active Substance: ATENOLOL
     Indication: BLOOD PRESSURE MEASUREMENT
     Dosage: 1/2 TABLET TWICE DAILY
     Route: 048
     Dates: start: 20151229

REACTIONS (1)
  - Hypersensitivity [Unknown]
